FAERS Safety Report 5652530-2 (Version None)
Quarter: 2008Q1

REPORT INFORMATION
  Report Type: 
  Country: None (occurrence: None)
  Receive Date: 20080305
  Receipt Date: 20080305
  Transmission Date: 20080703
  Serious: Yes (Hospitalization)
  Sender: FDA-Public Use
  Company Number: None

PATIENT
  Age: 39 Year
  Sex: Female
  Weight: 63.5036 kg

DRUGS (2)
  1. ETHEDENT 1.1% FLUORIDE ETHEX CORP. [Suspect]
     Indication: DENTAL CARIES
     Dosage: THIN STRIP 1X BEFORE BE PO
     Route: 048
     Dates: start: 20070907, end: 20070914
  2. ETHEDENT 1.1% FLUORIDE ETHEX CORP. [Suspect]
     Indication: PROPHYLAXIS
     Dosage: THIN STRIP 1X BEFORE BE PO
     Route: 048
     Dates: start: 20070907, end: 20070914

REACTIONS (1)
  - MYOCARDIAL INFARCTION [None]
